FAERS Safety Report 7403547-9 (Version None)
Quarter: 2011Q2

REPORT INFORMATION
  Report Type: 
  Country: None (occurrence: None)
  Receive Date: 20110408
  Receipt Date: 20110405
  Transmission Date: 20111010
  Serious: Yes (Disabling)
  Sender: FDA-Public Use
  Company Number: GB-MERCK-1103GBR00146

PATIENT
  Age: 76 Year
  Sex: Female

DRUGS (9)
  1. ACETAMINOPHEN AND CODEINE PHOSPHATE [Concomitant]
     Route: 048
  2. CALCIUM CARBONATE AND CHOLECALCIFEROL [Concomitant]
     Route: 048
  3. ASPIRIN [Concomitant]
     Route: 048
  4. NITRAZEPAM [Concomitant]
     Route: 065
  5. OMEPRAZOLE [Concomitant]
     Route: 048
  6. BISACODYL [Concomitant]
     Route: 048
  7. ATORVASTATIN [Concomitant]
     Route: 048
  8. FOSAMAX [Suspect]
     Indication: OSTEOPOROSIS
     Route: 048
     Dates: start: 20100301
  9. SENNA [Concomitant]
     Route: 048

REACTIONS (5)
  - ERYTHEMA [None]
  - GAIT DISTURBANCE [None]
  - MOBILITY DECREASED [None]
  - OEDEMA PERIPHERAL [None]
  - MEDICATION ERROR [None]
